FAERS Safety Report 7107290-5 (Version None)
Quarter: 2010Q4

REPORT INFORMATION
  Report Type: 
  Country: None (occurrence: None)
  Receive Date: 20101116
  Receipt Date: 20101111
  Transmission Date: 20110411
  Serious: Yes (Hospitalization)
  Sender: FDA-Public Use
  Company Number: DE-ABBOTT-10P-062-0684937-00

PATIENT
  Sex: Female
  Weight: 60 kg

DRUGS (7)
  1. HUMIRA [Suspect]
     Indication: CROHN'S DISEASE
  2. AZATHIOPRIN [Concomitant]
     Indication: CROHN'S DISEASE
     Dosage: 150 MG DAILY
     Dates: start: 20091201
  3. SULFASALAZINE [Concomitant]
     Indication: CROHN'S DISEASE
     Dosage: 3000 MG DAILY
     Dates: start: 20091201
  4. PREDNISOLONE [Concomitant]
     Indication: CROHN'S DISEASE
     Dates: start: 20100801
  5. METAMIZOL [Concomitant]
     Indication: PRODUCT USED FOR UNKNOWN INDICATION
     Dosage: 90 MG DAILY
     Dates: start: 20100801, end: 20100901
  6. CIPROFLOXACIN [Concomitant]
     Indication: PRODUCT USED FOR UNKNOWN INDICATION
     Dosage: 500 MG DAILY
     Dates: start: 20100801, end: 20100901
  7. METRONIDAZOLE [Concomitant]
     Indication: PRODUCT USED FOR UNKNOWN INDICATION
     Dosage: 1200 MG DAILY
     Dates: start: 20100801, end: 20100901

REACTIONS (3)
  - FISTULA [None]
  - PAIN [None]
  - PYREXIA [None]
